FAERS Safety Report 9845183 (Version 2)
Quarter: 2014Q1

REPORT INFORMATION
  Report Type: Spontaneous
  Country: US (occurrence: US)
  Receive Date: 20140127
  Receipt Date: 20140127
  Transmission Date: 20141002
  Serious: Yes (Hospitalization)
  Sender: FDA-Public Use
  Company Number: US-PFIZER INC-2013373178

PATIENT
  Age: 41 Year
  Sex: Male

DRUGS (11)
  1. OLANZAPINE [Suspect]
     Indication: SCHIZOPHRENIA, PARANOID TYPE
     Dosage: 5 MG, UNK
  2. RISPERIDONE [Suspect]
     Indication: SCHIZOPHRENIA, PARANOID TYPE
     Dosage: 0.5 MG, UNK
  3. ZOLPIDEM TARTRATE [Suspect]
     Dosage: 10 MG, 1X/DAY (AT BEDTIME)
  4. ZIPRASIDONE HCL [Suspect]
     Indication: SCHIZOPHRENIA, PARANOID TYPE
     Dosage: UNK
  5. LORAZEPAM [Suspect]
     Dosage: 1 MG, 3X/DAY
  6. CYCLOBENZAPRINE [Suspect]
     Dosage: 10 MG, UNK
  7. BENZTROPINE [Suspect]
     Dosage: 1 MG, 2X/DAY
  8. AMPHETAMINE [Suspect]
     Dosage: 10 MG, 1X/DAY
  9. DEXTROAMPHETAMINE [Suspect]
     Dosage: 10 MG, 1X/DAY
  10. ARIPIPRAZOLE [Suspect]
     Indication: SCHIZOPHRENIA, PARANOID TYPE
     Dosage: UNK
  11. HALOPERIDOL [Concomitant]
     Indication: SCHIZOPHRENIA, PARANOID TYPE

REACTIONS (13)
  - Parkinsonism [Recovering/Resolving]
  - Gait disturbance [Recovering/Resolving]
  - Tremor [Recovering/Resolving]
  - Tachycardia [Recovering/Resolving]
  - Musculoskeletal stiffness [Recovering/Resolving]
  - Muscle rigidity [Recovering/Resolving]
  - Posture abnormal [Recovering/Resolving]
  - Dysarthria [Recovering/Resolving]
  - Masked facies [Recovering/Resolving]
  - Drooling [Recovering/Resolving]
  - Speech disorder [Recovering/Resolving]
  - Hallucination, auditory [Recovering/Resolving]
  - Irritability [Recovering/Resolving]
